FAERS Safety Report 25039797 (Version 2)
Quarter: 2025Q2

REPORT INFORMATION
  Report Type: Spontaneous
  Country: JP (occurrence: JP)
  Receive Date: 20250305
  Receipt Date: 20250402
  Transmission Date: 20250716
  Serious: Yes (Other)
  Sender: REGENERON
  Company Number: JP-BAYER-2025A029171

PATIENT
  Age: 66 Year
  Sex: Female

DRUGS (2)
  1. EYLEA HD [Suspect]
     Active Substance: AFLIBERCEPT
     Indication: Diabetic retinal oedema
     Route: 031
     Dates: start: 20241204
  2. EYLEA HD [Suspect]
     Active Substance: AFLIBERCEPT
     Route: 031
     Dates: start: 20241213

REACTIONS (2)
  - Amaurosis fugax [Recovered/Resolved]
  - Amaurosis fugax [Recovered/Resolved]

NARRATIVE: CASE EVENT DATE: 20241204
